FAERS Safety Report 20576556 (Version 1)
Quarter: 2022Q1

REPORT INFORMATION
  Report Type: Other
  Country: CN (occurrence: None)
  Receive Date: 20220310
  Receipt Date: 20220310
  Transmission Date: 20220423
  Serious: Yes (Hospitalization, Other)
  Sender: FDA-Public Use
  Company Number: CN-Neopharma Inc-000538

PATIENT
  Age: 62 Year
  Sex: Male

DRUGS (3)
  1. AMOXICILLIN AND CLAVULANATE POTASSIUM [Suspect]
     Active Substance: AMOXICILLIN\CLAVULANATE POTASSIUM
     Indication: Lung abscess
     Dosage: 375 MG EVERY 8 HOURS
  2. AMOXICILLIN AND CLAVULANATE POTASSIUM [Suspect]
     Active Substance: AMOXICILLIN\CLAVULANATE POTASSIUM
     Indication: Fusobacterium infection
     Dosage: 375 MG EVERY 8 HOURS
  3. AMOXICILLIN AND CLAVULANATE POTASSIUM [Suspect]
     Active Substance: AMOXICILLIN\CLAVULANATE POTASSIUM
     Indication: Parvimonas micra infection
     Dosage: 375 MG EVERY 8 HOURS

REACTIONS (4)
  - Treatment failure [Unknown]
  - Infection [Recovered/Resolved]
  - Lung abscess [Recovered/Resolved]
  - Bronchogenic cyst [Recovered/Resolved]
